FAERS Safety Report 9368881 (Version 1)
Quarter: 2013Q2

REPORT INFORMATION
  Report Type: Spontaneous
  Country: TH (occurrence: None)
  Receive Date: 20130621
  Receipt Date: 20130621
  Transmission Date: 20140414
  Serious: Yes (Other)
  Sender: FDA-Public Use
  Company Number: 2012AP004343

PATIENT
  Age: 6 Year
  Sex: Female

DRUGS (1)
  1. FERRIPROX [Suspect]
     Indication: THALASSAEMIA BETA

REACTIONS (2)
  - Agranulocytosis [None]
  - Neutropenia [None]
